FAERS Safety Report 6212348-9 (Version None)
Quarter: 2009Q2

REPORT INFORMATION
  Report Type: 
  Country: None (occurrence: None)
  Receive Date: 20090529
  Receipt Date: 20090515
  Transmission Date: 20091009
  Serious: Yes (Hospitalization)
  Sender: FDA-Public Use
  Company Number: 2009AL003516

PATIENT
  Age: 64 Year
  Sex: Male

DRUGS (9)
  1. METFORMIN HCL [Suspect]
     Indication: DIABETES MELLITUS
     Dosage: 2.5 GM; PO
     Route: 048
     Dates: start: 20090211
  2. ENALAPRIL [Concomitant]
  3. LIPITOR [Concomitant]
  4. LAKTULOS [Concomitant]
  5. METOPROLOL SUCCINATE [Concomitant]
  6. PLAVIX [Concomitant]
  7. TRYPTIZOL [Concomitant]
  8. TROMBYL [Concomitant]
  9. GLYTRIN [Concomitant]

REACTIONS (3)
  - ANGIOEDEMA [None]
  - DIARRHOEA [None]
  - MYOCARDIAL INFARCTION [None]
